FAERS Safety Report 18757155 (Version 1)
Quarter: 2021Q1

REPORT INFORMATION
  Report Type: Spontaneous
  Country: US (occurrence: US)
  Receive Date: 20210119
  Receipt Date: 20210119
  Transmission Date: 20210419
  Serious: Yes (Other)
  Sender: FDA-Public Use
  Company Number: US-PURDUE-USA-2020-0198503

PATIENT
  Sex: Male

DRUGS (3)
  1. OXYCODONE/ ACETAMINOPHEN TABLETS [Suspect]
     Active Substance: ACETAMINOPHEN\OXYCODONE HYDROCHLORIDE
     Indication: JAW FRACTURE
     Dosage: UNK
     Route: 048
     Dates: start: 2012
  2. OXYCODONE HCL TABLETS (RHODES 91?490) [Suspect]
     Active Substance: OXYCODONE HYDROCHLORIDE
     Indication: JAW FRACTURE
     Dosage: UNK
     Route: 048
     Dates: start: 2012
  3. HYDROCODONE BITARTRATE AND ACETAMINOPHEN [Suspect]
     Active Substance: ACETAMINOPHEN\HYDROCODONE BITARTRATE
     Indication: JAW FRACTURE
     Dosage: UNK
     Route: 048
     Dates: start: 2012

REACTIONS (3)
  - Psychotic disorder [Unknown]
  - Depression [Unknown]
  - Drug dependence [Unknown]
